FAERS Safety Report 9703099 (Version 1)
Quarter: 2013Q4

REPORT INFORMATION
  Report Type: Spontaneous
  Country: US (occurrence: US)
  Receive Date: 20131122
  Receipt Date: 20131122
  Transmission Date: 20140711
  Serious: No
  Sender: FDA-Public Use
  Company Number: US-BIOGENIDEC-2013BI104225

PATIENT
  Age: 51 Year
  Sex: Male

DRUGS (2)
  1. AVONEX [Suspect]
     Indication: MULTIPLE SCLEROSIS
     Route: 030
     Dates: start: 20130924
  2. AVONEX [Suspect]
     Indication: MULTIPLE SCLEROSIS
     Route: 030
     Dates: start: 20131022

REACTIONS (7)
  - Abdominal discomfort [Recovered/Resolved]
  - Memory impairment [Unknown]
  - Erectile dysfunction [Unknown]
  - Somnolence [Recovered/Resolved]
  - Myalgia [Unknown]
  - Fatigue [Unknown]
  - Nausea [Unknown]
